FAERS Safety Report 9354016 (Version 4)
Quarter: 2016Q1

REPORT INFORMATION
  Report Type: Spontaneous
  Country: SE (occurrence: SE)
  Receive Date: 20130618
  Receipt Date: 20160126
  Transmission Date: 20160526
  Serious: Yes (Other)
  Sender: FDA-Public Use
  Company Number: SE-ELI_LILLY_AND_COMPANY-SE201306003158

PATIENT
  Age: 65 Year
  Sex: Male

DRUGS (22)
  1. AKINETON                           /00079503/ [Suspect]
     Active Substance: BIPERIDEN LACTATE
     Dosage: 16 MG, PRN
  2. ZYPREXA [Suspect]
     Active Substance: OLANZAPINE
     Dosage: 10 MG, QD
  3. ZYPREXA [Suspect]
     Active Substance: OLANZAPINE
     Dosage: 10 MG, QD
  4. PROPAVAN [Suspect]
     Active Substance: PROPIOMAZINE
     Indication: SLEEP DISORDER
     Dosage: 25 MG, PRN
     Route: 048
     Dates: start: 1993, end: 2010
  5. AKINETON                           /00079503/ [Suspect]
     Active Substance: BIPERIDEN LACTATE
     Indication: TREMOR
     Dosage: 10 MG, PRN
     Route: 065
  6. ZYPREXA [Suspect]
     Active Substance: OLANZAPINE
     Indication: SCHIZOPHRENIA
     Dosage: 7.5 MG, QD
     Dates: start: 20020506
  7. ZYPREXA [Suspect]
     Active Substance: OLANZAPINE
     Dosage: 12.5 MG, QD
     Dates: start: 2009
  8. PROPAVAN [Suspect]
     Active Substance: PROPIOMAZINE
     Dosage: 50 MG, PRN
     Route: 048
     Dates: start: 1993, end: 2010
  9. AKINETON                           /00079503/ [Suspect]
     Active Substance: BIPERIDEN LACTATE
     Indication: EXTRAPYRAMIDAL DISORDER
     Dosage: 2 MG, PRN
     Route: 048
  10. ZOPIKLON [Concomitant]
     Active Substance: ZOPICLONE
     Indication: INSOMNIA
     Dosage: 7.5 MG, QD
     Route: 048
     Dates: start: 2000
  11. ZYPREXA [Suspect]
     Active Substance: OLANZAPINE
     Dosage: 15 MG, QD
     Dates: start: 2006, end: 2011
  12. ZYPREXA [Suspect]
     Active Substance: OLANZAPINE
     Dosage: 10 MG, QD
  13. ZYPREXA [Suspect]
     Active Substance: OLANZAPINE
     Dosage: 7.5 MG, QD
     Route: 065
  14. AKINETON                           /00079503/ [Suspect]
     Active Substance: BIPERIDEN LACTATE
     Dosage: 6 MG, PRN
     Dates: start: 1992
  15. ZYPREXA [Suspect]
     Active Substance: OLANZAPINE
     Dosage: 7.5 MG, QD
     Route: 065
  16. CISORDINOL                         /00876702/ [Suspect]
     Active Substance: ZUCLOPENTHIXOL
     Indication: SCHIZOPHRENIA
     Dosage: 40 ML, OTHER
     Route: 030
     Dates: start: 1992
  17. IMOVANE [Suspect]
     Active Substance: ZOPICLONE
     Indication: PRODUCT USED FOR UNKNOWN INDICATION
     Dosage: 1 DF, UNKNOWN
     Route: 065
  18. ZYPREXA [Suspect]
     Active Substance: OLANZAPINE
     Dosage: UNK UNK, UNKNOWN
     Dates: start: 2013
  19. CISORDINOL                         /00876702/ [Suspect]
     Active Substance: ZUCLOPENTHIXOL
     Dosage: 0.2 ML, OTHER
     Route: 048
  20. CISORDINOL                         /00876702/ [Suspect]
     Active Substance: ZUCLOPENTHIXOL
     Indication: PSYCHOTIC DISORDER
     Dosage: 100 MG, OTHER
     Route: 030
  21. RISPERDAL [Suspect]
     Active Substance: RISPERIDONE
     Indication: PRODUCT USED FOR UNKNOWN INDICATION
     Dosage: 1 DF, UNKNOWN
     Route: 065
  22. ALCOHOL. [Suspect]
     Active Substance: ALCOHOL
     Dosage: 60 DF, UNKNOWN
     Route: 065

REACTIONS (42)
  - Balance disorder [Unknown]
  - Tinnitus [Unknown]
  - Adjustment disorder [Unknown]
  - Anxiety [Unknown]
  - Heart rate increased [Unknown]
  - Parkinsonism [Unknown]
  - Tremor [Unknown]
  - Dysarthria [Unknown]
  - Sexual dysfunction [Unknown]
  - Weight increased [Unknown]
  - Diarrhoea [Unknown]
  - Irritability [Unknown]
  - Reading disorder [Unknown]
  - Libido increased [Unknown]
  - Inferiority complex [Unknown]
  - Depression [Unknown]
  - Feeling cold [Unknown]
  - Muscle disorder [Unknown]
  - Increased appetite [Unknown]
  - Disturbance in attention [Unknown]
  - Homicidal ideation [Unknown]
  - Sensory loss [Unknown]
  - Gait disturbance [Unknown]
  - Insomnia [Unknown]
  - Pollakiuria [Unknown]
  - Photophobia [Unknown]
  - Mental disorder [Unknown]
  - Mood altered [Unknown]
  - Apathy [Unknown]
  - Sensory disturbance [Not Recovered/Not Resolved]
  - Feeling abnormal [Unknown]
  - Nightmare [Unknown]
  - Fatigue [Unknown]
  - Incontinence [Unknown]
  - Memory impairment [Unknown]
  - Facial spasm [Unknown]
  - Flatulence [Unknown]
  - Psychotic disorder [Not Recovered/Not Resolved]
  - Thinking abnormal [Unknown]
  - Malaise [Unknown]
  - Reflexes abnormal [Unknown]
  - Disturbance in social behaviour [Unknown]

NARRATIVE: CASE EVENT DATE: 2012
